FAERS Safety Report 15093139 (Version 1)
Quarter: 2018Q3

REPORT INFORMATION
  Report Type: Report from Study
  Country: IT (occurrence: IT)
  Receive Date: 20180629
  Receipt Date: 20180629
  Transmission Date: 20181010
  Serious: Yes (Hospitalization)
  Sender: FDA-Public Use
  Company Number: IT-TEVA-2018-IT-918397

PATIENT
  Age: 48 Year
  Sex: Female

DRUGS (4)
  1. DIAZEPAM. [Suspect]
     Active Substance: DIAZEPAM
     Route: 048
     Dates: start: 20180307, end: 20180307
  2. LAROXYL 40 MG/ML GOCCE ORALI SOLUZIONE [Suspect]
     Active Substance: AMITRIPTYLINE HYDROCHLORIDE
     Route: 048
     Dates: start: 20180307, end: 20180307
  3. RIVOTRIL [Suspect]
     Active Substance: CLONAZEPAM
     Route: 048
     Dates: start: 20180307, end: 20180307
  4. MINIAS 2,5 MG/ML GOCCE ORALI, SOLUZIONE [Suspect]
     Active Substance: LORMETAZEPAM
     Route: 048
     Dates: start: 20180307, end: 20180307

REACTIONS (2)
  - Toxicity to various agents [Recovering/Resolving]
  - Drug abuse [Recovering/Resolving]

NARRATIVE: CASE EVENT DATE: 20180307
